FAERS Safety Report 9227030 (Version 3)
Quarter: 2013Q2

REPORT INFORMATION
  Report Type: Spontaneous
  Country: JP (occurrence: None)
  Receive Date: 20130410
  Receipt Date: 20130507
  Transmission Date: 20140414
  Serious: Yes (Other)
  Sender: FDA-Public Use
  Company Number: AXC-2013-000130

PATIENT
  Age: 85 Year
  Sex: Female

DRUGS (2)
  1. URSODEOXYCHOLIC ACID [Suspect]
     Indication: HEPATIC ENZYME INCREASED
     Dosage: INTRAGASTRIC?
     Dates: start: 20130312, end: 20130321
  2. URSODEOXYCHOLIC ACID [Suspect]
     Indication: JAUNDICE
     Dosage: INTRAGASTRIC?
     Dates: start: 20130312, end: 20130321

REACTIONS (11)
  - Rash erythematous [None]
  - Pyrexia [None]
  - Rash [None]
  - Rash [None]
  - Infection [None]
  - Drug eruption [None]
  - Pruritus [None]
  - Flushing [None]
  - Hyperthermia [None]
  - Drug reaction with eosinophilia and systemic symptoms [None]
  - Device related infection [None]
